FAERS Safety Report 6512192-9 (Version None)
Quarter: 2009Q4

REPORT INFORMATION
  Report Type: 
  Country: None (occurrence: None)
  Receive Date: 20091219
  Receipt Date: 20091201
  Transmission Date: 20100525
  Serious: Yes (Death)
  Sender: FDA-Public Use
  Company Number: B0614009A

PATIENT
  Sex: 0

DRUGS (6)
  1. MELPHALAN (FORMULATION UNKNOWN) (GENERIC) (MELPHALAN)  (FORMULATION UN [Suspect]
     Indication: STEM CELL TRANSPLANT
     Dosage: 140 MG/M2/PER DAY
  2. FLUDARABINE PHOSPHATE [Suspect]
     Indication: STEM CELL TRANSPLANT
     Dosage: 25 MG/M2/ER DAY
  3. IBRITUMOMAB TIUXETAN (FORMULATION UNKNOWN) (IBRITUMOMAB TIUXETAN) [Suspect]
     Indication: STEM CELL TRANSPLANT
  4. TACROLIMUS [Concomitant]
  5. SIROLIMUS [Concomitant]
  6. RITUXIMAB [Concomitant]

REACTIONS (3)
  - DIFFUSE ALVEOLAR DAMAGE [None]
  - PNEUMONIA VIRAL [None]
  - PULMONARY ALVEOLAR HAEMORRHAGE [None]
